FAERS Safety Report 5420774-0 (Version None)
Quarter: 2007Q3

REPORT INFORMATION
  Report Type: 
  Country: None (occurrence: None)
  Receive Date: 20070816
  Receipt Date: 20070801
  Transmission Date: 20080115
  Serious: Yes (Hospitalization, Other)
  Sender: FDA-Public Use
  Company Number: 2007001352

PATIENT
  Age: 63 Year
  Sex: Female

DRUGS (13)
  1. TARCEVA [Suspect]
     Indication: LUNG NEOPLASM MALIGNANT
     Dosage: 150 MG (QD),ORAL
     Route: 048
     Dates: start: 20070216
  2. PREDNISOLONE [Concomitant]
  3. HYDROCHLOROTHIAZIDE [Concomitant]
  4. PANTOZOL (PANTOPRAZOLE SODIUM) [Concomitant]
  5. LEVOTHYROXINE SODIUM [Concomitant]
  6. MOVICOL (NULYTELY) [Concomitant]
  7. IBUPROFEN [Concomitant]
  8. TOREM (TORASEMIDE) [Concomitant]
  9. MORPHINE [Concomitant]
  10. HALOPERIDOL [Concomitant]
  11. VIANI (SERETIDE MITE) [Concomitant]
  12. SPIRVA [Concomitant]
  13. CLINDAMYCIN (CLINDAMYCIN) [Concomitant]

REACTIONS (12)
  - ANAEMIA OF MALIGNANT DISEASE [None]
  - BLOOD THYROID STIMULATING HORMONE INCREASED [None]
  - BREAST MASS [None]
  - BREAST NEOPLASM [None]
  - CELLULITIS [None]
  - HAEMOPTYSIS [None]
  - HYPOKALAEMIA [None]
  - HYPONATRAEMIA [None]
  - METASTASES TO LUNG [None]
  - METASTASIS [None]
  - NECROSIS [None]
  - WEIGHT INCREASED [None]
